FAERS Safety Report 7386442-3 (Version None)
Quarter: 2011Q1

REPORT INFORMATION
  Report Type: 
  Country: None (occurrence: None)
  Receive Date: 20110331
  Receipt Date: 20110328
  Transmission Date: 20110831
  Serious: Yes (Life-Threatening, Other)
  Sender: FDA-Public Use
  Company Number: PHHY2011US25532

PATIENT
  Sex: Female

DRUGS (2)
  1. FOSAMAX [Suspect]
     Dosage: UNK
  2. MIACALCIN [Suspect]
     Dosage: UNK

REACTIONS (4)
  - FRACTURE [None]
  - COMA [None]
  - ARTERIAL OCCLUSIVE DISEASE [None]
  - RENAL DISORDER [None]
